FAERS Safety Report 5364131-4 (Version None)
Quarter: 2007Q2

REPORT INFORMATION
  Report Type: 
  Country: None (occurrence: None)
  Receive Date: 20070620
  Receipt Date: 20070607
  Transmission Date: 20071010
  Serious: Yes (Hospitalization, Other)
  Sender: FDA-Public Use
  Company Number: US-ELI_LILLY_AND_COMPANY-US200705005137

PATIENT
  Age: 84 Year
  Sex: Male
  Weight: 69.841 kg

DRUGS (11)
  1. FORTEO [Suspect]
     Indication: OSTEOPOROSIS
     Dosage: 20 UG, DAILY (1/D)
     Dates: start: 20070515, end: 20070517
  2. OXYGEN [Concomitant]
  3. MIRALAX [Concomitant]
  4. MEGACE [Concomitant]
  5. PEPCID [Concomitant]
  6. CALTRATE + D [Concomitant]
  7. ASPIRIN [Concomitant]
  8. LIPITOR [Concomitant]
  9. ADVAIR DISKUS 100/50 [Concomitant]
  10. SINGULAIR [Concomitant]
  11. SPIRIVA [Concomitant]

REACTIONS (6)
  - ANXIETY [None]
  - BLOOD PRESSURE INCREASED [None]
  - CHEST PAIN [None]
  - CHRONIC OBSTRUCTIVE PULMONARY DISEASE [None]
  - DYSPHAGIA [None]
  - HEADACHE [None]
